FAERS Safety Report 9151345 (Version 1)
Quarter: 2013Q1

REPORT INFORMATION
  Report Type: Spontaneous
  Country: US (occurrence: US)
  Receive Date: 20130308
  Receipt Date: 20130308
  Transmission Date: 20140127
  Serious: No
  Sender: FDA-Public Use
  Company Number: US-GLAXOSMITHKLINE-A0978541A

PATIENT
  Age: 46 Year
  Sex: Female

DRUGS (1)
  1. WALGREEN NICOTINE [Suspect]
     Indication: EX-TOBACCO USER
     Route: 002
     Dates: start: 20120522, end: 20120522

REACTIONS (5)
  - Oral discomfort [Recovered/Resolved]
  - Drug administration error [Unknown]
  - Throat irritation [Recovered/Resolved]
  - Dizziness [Recovered/Resolved]
  - Paraesthesia [Not Recovered/Not Resolved]
